FAERS Safety Report 11079086 (Version 3)
Quarter: 2015Q3

REPORT INFORMATION
  Report Type: Spontaneous
  Country: US (occurrence: US)
  Receive Date: 20150430
  Receipt Date: 20150804
  Transmission Date: 20151125
  Serious: Yes (Hospitalization, Other)
  Sender: FDA-Public Use
  Company Number: US-INCYTE CORPORATION-2015IN001719

PATIENT
  Age: 71 Year
  Sex: Female
  Weight: 51.25 kg

DRUGS (19)
  1. OMEPRAZOLE. [Concomitant]
     Active Substance: OMEPRAZOLE
     Indication: PROPHYLAXIS AGAINST GASTROINTESTINAL ULCER
     Dosage: 40 MG
  2. COUMADIN [Concomitant]
     Active Substance: WARFARIN SODIUM
     Dosage: 3 MG, QD
     Route: 048
     Dates: start: 2012
  3. LANTUS [Concomitant]
     Active Substance: INSULIN GLARGINE
     Dosage: 100 ML
  4. JAKAFI [Suspect]
     Active Substance: RUXOLITINIB
     Dosage: 10 MG, BID
     Route: 048
     Dates: start: 201504
  5. SOTALOL. [Concomitant]
     Active Substance: SOTALOL
     Dosage: 80 MG
  6. JAKAFI [Suspect]
     Active Substance: RUXOLITINIB
     Indication: MYELOFIBROSIS
     Dosage: 20 MG, BID
     Route: 048
     Dates: start: 20150304, end: 201504
  7. LISINOPRIL. [Concomitant]
     Active Substance: LISINOPRIL
     Dosage: 40 MG
  8. ATORVASTATIN CALCIUM. [Concomitant]
     Active Substance: ATORVASTATIN CALCIUM
     Dosage: 20 MG
  9. NITROGLYCERIN. [Concomitant]
     Active Substance: NITROGLYCERIN
     Dosage: 400 MCG
  10. DIGITEK [Concomitant]
     Active Substance: DIGOXIN
     Dosage: 125 MCG
  11. INSULIN INJECTION [Concomitant]
     Active Substance: INSULIN NOS
     Dosage: 31 GX5
  12. PANTOPRAZOLE SODIUM. [Concomitant]
     Active Substance: PANTOPRAZOLE SODIUM
     Dosage: 40 MG
  13. CEPHALEXIN                         /00145501/ [Concomitant]
     Active Substance: CEPHALEXIN
     Dosage: 500 MG
  14. FUROSEMIDE. [Concomitant]
     Active Substance: FUROSEMIDE
     Dosage: 40 MG
  15. FENOFIBRIC ACID. [Concomitant]
     Active Substance: FENOFIBRIC ACID
     Dosage: 135 MG
  16. CARVEDILOL. [Concomitant]
     Active Substance: CARVEDILOL
     Dosage: 25 MG
  17. METFORMIN HCL [Concomitant]
     Active Substance: METFORMIN HYDROCHLORIDE
     Dosage: 500 MG
  18. COUMADIN [Concomitant]
     Active Substance: WARFARIN SODIUM
     Dosage: 2 MG, QD
     Route: 048
     Dates: start: 2015
  19. CARTIA XT [Concomitant]
     Active Substance: DILTIAZEM HYDROCHLORIDE
     Dosage: 240 MG

REACTIONS (6)
  - Haemorrhage subcutaneous [Recovered/Resolved]
  - International normalised ratio abnormal [Recovered/Resolved]
  - Dizziness [Recovered/Resolved]
  - Epistaxis [Recovered/Resolved]
  - Platelet count decreased [Recovered/Resolved]
  - Hyperchlorhydria [Recovered/Resolved]

NARRATIVE: CASE EVENT DATE: 201504
